FAERS Safety Report 6279432-5 (Version None)
Quarter: 2009Q3

REPORT INFORMATION
  Report Type: 
  Country: None (occurrence: None)
  Receive Date: 20090723
  Receipt Date: 20090714
  Transmission Date: 20100115
  Serious: Yes (Death)
  Sender: FDA-Public Use
  Company Number: CR-WYE-H10173709

PATIENT
  Age: 81 Year
  Sex: Female

DRUGS (2)
  1. PANTECTA [Suspect]
     Dosage: 40 MG, FREQUENCY UNKNOWN
     Route: 048
  2. TRAMADOL HCL [Concomitant]
     Dosage: UNKNOWN

REACTIONS (1)
  - PANCREATIC CARCINOMA [None]
